FAERS Safety Report 24600966 (Version 1)
Quarter: 2024Q4

REPORT INFORMATION
  Report Type: Report from Study
  Country: CO (occurrence: CO)
  Receive Date: 20241110
  Receipt Date: 20241110
  Transmission Date: 20250114
  Serious: Yes (Hospitalization)
  Sender: AMGEN
  Company Number: CO-AMGEN-COLSL2024092788

PATIENT
  Age: 25 Year
  Sex: Female

DRUGS (4)
  1. VECTIBIX [Suspect]
     Active Substance: PANITUMUMAB
     Indication: Colorectal cancer metastatic
     Dosage: UNK UNK, Q2WK
     Route: 042
     Dates: start: 20240430
  2. VECTIBIX [Suspect]
     Active Substance: PANITUMUMAB
     Dosage: UNK EVERY 15 DAYS
     Route: 042
     Dates: start: 20240514
  3. VECTIBIX [Suspect]
     Active Substance: PANITUMUMAB
     Dosage: UNK Q2WK (BIWEEKLY )
     Route: 042
     Dates: start: 2024, end: 20240625
  4. DIPYRONE [Concomitant]
     Active Substance: DIPYRONE
     Dosage: UNK
     Route: 065

REACTIONS (5)
  - Abdominal pain upper [Not Recovered/Not Resolved]
  - Vomiting [Not Recovered/Not Resolved]
  - Nausea [Not Recovered/Not Resolved]
  - Rash [Not Recovered/Not Resolved]
  - Pruritus [Not Recovered/Not Resolved]

NARRATIVE: CASE EVENT DATE: 20240501
